FAERS Safety Report 10530444 (Version 1)
Quarter: 2014Q4

REPORT INFORMATION
  Report Type: Spontaneous
  Country: DE (occurrence: None)
  Receive Date: 20141017
  Receipt Date: 20141017
  Transmission Date: 20150528
  Serious: Yes (Other)
  Sender: FDA-Public Use
  Company Number: 2014SCAL000182

PATIENT
  Age: 55 Year
  Sex: Male

DRUGS (1)
  1. THEOPHYLINE XR (THEOPHYLINE) UNKNOWN [Suspect]
     Active Substance: THEOPHYLLINE ANHYDROUS
     Indication: PRODUCT USED FOR UNKNOWN INDICATION

REACTIONS (5)
  - Amnestic disorder [None]
  - Accidental exposure to product [None]
  - Toxicity to various agents [None]
  - Status epilepticus [None]
  - Cerebral atrophy [None]
